FAERS Safety Report 5356878-0 (Version None)
Quarter: 2007Q2

REPORT INFORMATION
  Report Type: 
  Country: None (occurrence: None)
  Receive Date: 20070614
  Receipt Date: 20061229
  Transmission Date: 20071010
  Serious: No
  Sender: FDA-Public Use
  Company Number: US-ASTRAZENECA-2006UW28686

PATIENT
  Age: 85 Year
  Sex: Male
  Weight: 83.9 kg

DRUGS (8)
  1. ATACAND [Suspect]
     Route: 048
  2. ATACAND [Suspect]
     Route: 048
     Dates: start: 20061228
  3. COUMADIN [Concomitant]
  4. ALLOPURINOL [Concomitant]
  5. LOVASTATIN [Concomitant]
     Dates: start: 20050101
  6. LEVOTHYROXINE SODIUM [Concomitant]
  7. GLIPIZIDE [Concomitant]
  8. HYDROCHLOROTHIAZIDE [Concomitant]

REACTIONS (1)
  - PAIN IN EXTREMITY [None]
